FAERS Safety Report 15619250 (Version 2)
Quarter: 2018Q4

REPORT INFORMATION
  Report Type: Spontaneous
  Country: US (occurrence: US)
  Receive Date: 20181114
  Receipt Date: 20181205
  Transmission Date: 20190205
  Serious: No
  Sender: FDA-Public Use
  Company Number: US-SA-2018SA312761

PATIENT
  Age: 69 Year
  Sex: Male

DRUGS (2)
  1. DUPIXENT [Suspect]
     Active Substance: DUPILUMAB
     Indication: DERMATITIS ATOPIC
     Dosage: 600 MG, 1X
     Route: 058
     Dates: start: 201803, end: 201803
  2. DUPIXENT [Suspect]
     Active Substance: DUPILUMAB
     Dosage: 300 MG, QOW
     Route: 058
     Dates: start: 201803

REACTIONS (8)
  - Eye pruritus [Unknown]
  - Ocular hyperaemia [Unknown]
  - Eye swelling [Unknown]
  - Skin texture abnormal [Unknown]
  - Skin disorder [Unknown]
  - Lacrimation increased [Unknown]
  - Eye disorder [Unknown]
  - Drug ineffective [Unknown]
